FAERS Safety Report 6243230-9 (Version None)
Quarter: 2009Q2

REPORT INFORMATION
  Report Type: 
  Country: None (occurrence: None)
  Receive Date: 20090622
  Receipt Date: 20090622
  Transmission Date: 20091009
  Serious: Yes (Hospitalization)
  Sender: FDA-Public Use
  Company Number: None

PATIENT
  Age: 69 Year
  Sex: Male
  Weight: 90.7194 kg

DRUGS (1)
  1. LEVAQUIN [Suspect]
     Indication: SINUSITIS
     Dosage: PO
     Route: 048
     Dates: start: 20080428, end: 20080515

REACTIONS (4)
  - CONDITION AGGRAVATED [None]
  - PAIN [None]
  - ROTATOR CUFF SYNDROME [None]
  - TEMPORAL ARTERITIS [None]
